FAERS Safety Report 13661992 (Version 1)
Quarter: 2017Q2

REPORT INFORMATION
  Report Type: Report from Study
  Country: MY (occurrence: MY)
  Receive Date: 20170616
  Receipt Date: 20170616
  Transmission Date: 20170830
  Serious: Yes (Hospitalization, Other)
  Sender: FDA-Public Use
  Company Number: MY-SEATTLE GENETICS-2017SGN01463

PATIENT
  Age: 0 Day
  Sex: Female

DRUGS (1)
  1. BRENTUXIMAB VEDOTIN [Suspect]
     Active Substance: BRENTUXIMAB VEDOTIN
     Indication: HODGKIN^S DISEASE REFRACTORY
     Dosage: 1.8 MG/M2, UNK
     Route: 042
     Dates: start: 20140923, end: 20150218

REACTIONS (1)
  - Congenital small intestinal atresia [Recovered/Resolved]

NARRATIVE: CASE EVENT DATE: 20161030
